FAERS Safety Report 12188163 (Version 1)
Quarter: 2016Q1

REPORT INFORMATION
  Report Type: Spontaneous
  Country: DE (occurrence: DE)
  Receive Date: 20160317
  Receipt Date: 20160317
  Transmission Date: 20160526
  Serious: Yes (Hospitalization)
  Sender: FDA-Public Use
  Company Number: DE-SA-2016SA015576

PATIENT
  Sex: Female

DRUGS (3)
  1. NOVALGIN [Concomitant]
     Active Substance: METAMIZOLE SODIUM
     Indication: ARTHRALGIA
     Route: 048
     Dates: start: 201505
  2. AUBAGIO [Suspect]
     Active Substance: TERIFLUNOMIDE
     Indication: RELAPSING-REMITTING MULTIPLE SCLEROSIS
     Route: 048
     Dates: start: 20141114, end: 20160118
  3. NOVALGIN [Concomitant]
     Active Substance: METAMIZOLE SODIUM
     Indication: TOOTHACHE
     Route: 048
     Dates: start: 201505

REACTIONS (4)
  - Impaired healing [Unknown]
  - Osteonecrosis of jaw [Unknown]
  - Tooth extraction [Unknown]
  - Osteitis [Unknown]

NARRATIVE: CASE EVENT DATE: 2015
